FAERS Safety Report 8270252-9 (Version None)
Quarter: 2012Q2

REPORT INFORMATION
  Report Type: 
  Country: None (occurrence: None)
  Receive Date: 20120410
  Receipt Date: 20090415
  Transmission Date: 20120825
  Serious: Yes (Death, Hospitalization, Other)
  Sender: FDA-Public Use
  Company Number: GR-ABBOTT-09P-066-0559984-00

PATIENT
  Sex: Female
  Weight: 55 kg

DRUGS (13)
  1. SIMVASTATIN [Interacting]
     Indication: HYPERLIPIDAEMIA
     Route: 048
     Dates: start: 20081001
  2. ALVEFCO [Concomitant]
     Indication: BRONCHITIS
     Route: 055
  3. ALVEFCO [Concomitant]
  4. OLARTAN [Concomitant]
     Indication: PRODUCT USED FOR UNKNOWN INDICATION
     Route: 048
  5. NITRONG [Concomitant]
     Route: 048
     Dates: start: 20080501
  6. CONTROLLOC [Concomitant]
     Indication: PRODUCT USED FOR UNKNOWN INDICATION
     Route: 048
  7. SPIRIVA [Concomitant]
     Indication: RESPIRATORY DISORDER
     Route: 055
  8. CARVEDILOL [Concomitant]
     Indication: HYPERTENSION
     Route: 048
     Dates: start: 20080501
  9. SALOSPIR [Concomitant]
     Indication: PRODUCT USED FOR UNKNOWN INDICATION
     Route: 048
  10. CLOPIDOGREL BISULFATE [Concomitant]
     Indication: PRODUCT USED FOR UNKNOWN INDICATION
     Route: 048
  11. SPIRIVA [Concomitant]
  12. CLARITHROMYCIN [Suspect]
     Indication: BRONCHITIS
     Route: 048
     Dates: start: 20090101
  13. NITRONG [Concomitant]
     Indication: HYPERTENSION
     Dosage: PATCH
     Route: 062
     Dates: start: 20080501

REACTIONS (7)
  - BACK PAIN [None]
  - MULTI-ORGAN FAILURE [None]
  - MUSCULAR WEAKNESS [None]
  - RHABDOMYOLYSIS [None]
  - RENAL FAILURE [None]
  - DRUG INTERACTION [None]
  - ARTHRALGIA [None]
